FAERS Safety Report 6309035-5 (Version None)
Quarter: 2009Q3

REPORT INFORMATION
  Report Type: 
  Country: None (occurrence: None)
  Receive Date: 20090814
  Receipt Date: 20090811
  Transmission Date: 20100115
  Serious: Yes (Hospitalization)
  Sender: FDA-Public Use
  Company Number: US-BIOGENIDEC-2009BI020547

PATIENT
  Age: 39 Year
  Sex: Female

DRUGS (1)
  1. TYSABRI [Suspect]
     Indication: MULTIPLE SCLEROSIS
     Route: 042
     Dates: start: 20081030

REACTIONS (7)
  - ADRENAL DISORDER [None]
  - ENDOMETRIOSIS [None]
  - HAEMANGIOMA [None]
  - MUSCLE SPASMS [None]
  - SOMNOLENCE [None]
  - SPINAL FUSION SURGERY [None]
  - UTERINE LEIOMYOMA [None]
